FAERS Safety Report 9386212 (Version 2)
Quarter: 2013Q3

REPORT INFORMATION
  Report Type: Spontaneous
  Country: JP (occurrence: JP)
  Receive Date: 20130708
  Receipt Date: 20130807
  Transmission Date: 20140515
  Serious: Yes (Other)
  Sender: FDA-Public Use
  Company Number: JP-PFIZER INC-2013189105

PATIENT
  Age: 71 Year
  Sex: Female

DRUGS (3)
  1. ALDACTONE A [Suspect]
     Indication: HYPERALDOSTERONISM
     Dosage: 25 MG, DAILY
     Route: 048
     Dates: start: 20130416
  2. ALDACTONE A [Suspect]
     Dosage: 12.5 MG, DAILY
     Dates: end: 201306
  3. AMLODIN [Concomitant]
     Dosage: UNK

REACTIONS (12)
  - Cystitis [Not Recovered/Not Resolved]
  - Blood uric acid increased [Unknown]
  - Blood potassium increased [Unknown]
  - Blood creatinine increased [Recovered/Resolved]
  - Malaise [Unknown]
  - Decreased appetite [Unknown]
  - Asthenia [Unknown]
  - Apathy [Unknown]
  - Blood pressure increased [Unknown]
  - Diarrhoea [Unknown]
  - Pyrexia [Unknown]
  - Vomiting [Unknown]
